FAERS Safety Report 7591542-9 (Version None)
Quarter: 2011Q3

REPORT INFORMATION
  Report Type: 
  Country: None (occurrence: None)
  Receive Date: 20110701
  Receipt Date: 20110701
  Transmission Date: 20111222
  Serious: Yes (Other)
  Sender: FDA-Public Use
  Company Number: None

PATIENT
  Age: 14 Year
  Sex: Female
  Weight: 52.9 kg

DRUGS (1)
  1. AMBISOME [Suspect]
     Indication: PNEUMONIA
     Dosage: 255MG DAILY IV BOLUS
     Route: 040
     Dates: start: 20110624, end: 20110624

REACTIONS (2)
  - DRUG HYPERSENSITIVITY [None]
  - WRONG TECHNIQUE IN DRUG USAGE PROCESS [None]
